FAERS Safety Report 9868205 (Version 1)
Quarter: 2014Q1

REPORT INFORMATION
  Report Type: Spontaneous
  Country: FR (occurrence: FR)
  Receive Date: 20140204
  Receipt Date: 20140204
  Transmission Date: 20141002
  Serious: Yes (Other)
  Sender: FDA-Public Use
  Company Number: PHHY2014FR012362

PATIENT
  Sex: Female

DRUGS (6)
  1. FEMARA [Suspect]
     Indication: BREAST CANCER
     Dosage: 1 DF, DAILY
     Route: 048
  2. SANDOSTATIN LAR [Concomitant]
     Indication: SMALL INTESTINE CARCINOMA
     Dosage: 30 MG/MONTH
     Route: 030
     Dates: start: 2009
  3. LEVOTHYROX [Concomitant]
     Indication: HORMONE REPLACEMENT THERAPY
     Dosage: UNK UKN, UNK
     Route: 048
     Dates: start: 1994
  4. LODOZ [Concomitant]
     Indication: HYPERTENSION
     Dosage: UNK UKN, UNK
     Route: 048
  5. EXFORGE [Concomitant]
     Indication: HYPERTENSION
     Dosage: UNK UKN, UNK
  6. MEDIATENSYL [Concomitant]
     Indication: HYPERTENSION
     Dosage: UNK UKN, UNK

REACTIONS (4)
  - Aphasia [Recovered/Resolved]
  - Cerebral amyloid angiopathy [Unknown]
  - Leukoencephalopathy [Unknown]
  - Cerebral infarction [Unknown]
